FAERS Safety Report 12967599 (Version 4)
Quarter: 2016Q4

REPORT INFORMATION
  Report Type: Report from Study
  Country: DE (occurrence: DE)
  Receive Date: 20161123
  Receipt Date: 20161230
  Transmission Date: 20170207
  Serious: Yes (Other)
  Sender: FDA-Public Use
  Company Number: PHHY2016DE158882

PATIENT
  Age: 28 Year
  Sex: Female
  Weight: 81 kg

DRUGS (20)
  1. NOVALGIN [Concomitant]
     Active Substance: METAMIZOLE SODIUM
     Dosage: 1 G, QD
     Route: 048
     Dates: start: 20161115, end: 20161115
  2. TAFINLAR [Suspect]
     Active Substance: DABRAFENIB MESYLATE
     Indication: METASTATIC MALIGNANT MELANOMA
     Dosage: 150 MG, BID
     Route: 048
     Dates: start: 20161110, end: 20161116
  3. TRAMETINIB [Suspect]
     Active Substance: TRAMETINIB
     Indication: METASTATIC MALIGNANT MELANOMA
     Dosage: 2 MG, QD
     Route: 048
     Dates: start: 20161111, end: 20161116
  4. VOMEX A [Concomitant]
     Active Substance: DIMENHYDRINATE
     Indication: NAUSEA
     Dosage: 62 MG, QD
     Route: 042
     Dates: start: 20161110, end: 20161110
  5. PARACETAMOL [Concomitant]
     Active Substance: ACETAMINOPHEN
     Indication: SPINAL PAIN
     Dosage: 1 G, QD
     Route: 042
     Dates: start: 20161110, end: 20161110
  6. NOVALGIN [Concomitant]
     Active Substance: METAMIZOLE SODIUM
     Dosage: 1 G, 5QD
     Route: 042
     Dates: start: 20161111, end: 20161111
  7. NOVALGIN [Concomitant]
     Active Substance: METAMIZOLE SODIUM
     Dosage: 1 G, TID
     Route: 042
     Dates: start: 20161115, end: 20161115
  8. NOVAMINSULFON [Concomitant]
     Active Substance: METAMIZOLE
     Indication: PRODUCT USED FOR UNKNOWN INDICATION
     Dosage: 500 MG, 6QD
     Route: 048
     Dates: start: 20161125
  9. NOVALGIN [Concomitant]
     Active Substance: METAMIZOLE SODIUM
     Dosage: 1 G, QID
     Route: 042
     Dates: start: 20161112, end: 20161114
  10. PALLADON [Concomitant]
     Active Substance: HYDROMORPHONE
     Indication: SPINAL PAIN
     Dosage: 1.3 MG, BID
     Route: 048
     Dates: start: 20161110, end: 20161110
  11. NOVALGIN [Concomitant]
     Active Substance: METAMIZOLE SODIUM
     Indication: SPINAL PAIN
     Dosage: 1 G, BID
     Route: 042
     Dates: start: 20161110
  12. TAFINLAR [Suspect]
     Active Substance: DABRAFENIB MESYLATE
     Indication: BRAF GENE MUTATION
     Dosage: 150 MG, BID
     Route: 048
     Dates: start: 20161121
  13. TRAMETINIB [Suspect]
     Active Substance: TRAMETINIB
     Indication: BRAF GENE MUTATION
     Dosage: 1.5 MG, QD
     Route: 048
     Dates: start: 20161121
  14. APIDRA [Concomitant]
     Active Substance: INSULIN GLULISINE
     Indication: TYPE 1 DIABETES MELLITUS
     Dosage: 29.5 IU, QD
     Route: 058
     Dates: start: 20060101
  15. PALLADON [Concomitant]
     Active Substance: HYDROMORPHONE
     Dosage: 1.3 MG, QD
     Route: 048
     Dates: start: 20161111, end: 20161113
  16. METRONIDAZOL [Concomitant]
     Active Substance: METRONIDAZOLE
     Indication: PRODUCT USED FOR UNKNOWN INDICATION
     Dosage: 500 MG, BID
     Route: 042
     Dates: start: 20161107, end: 20161110
  17. NOVALGIN [Concomitant]
     Active Substance: METAMIZOLE SODIUM
     Dosage: 1 G, QID
     Route: 048
     Dates: start: 20161116
  18. CEFUROXIM [Concomitant]
     Active Substance: CEFUROXIME
     Indication: PYREXIA
     Dosage: 1.5 G, TID
     Route: 042
     Dates: start: 20161107, end: 20161110
  19. MOVICOL [Concomitant]
     Active Substance: POLYETHYLENE GLYCOL 3350\POTASSIUM CHLORIDE\SODIUM BICARBONATE\SODIUM CHLORIDE
     Indication: CONSTIPATION
     Dosage: 13.81 G, QD
     Route: 048
     Dates: start: 20161108
  20. RINGER [Concomitant]
     Indication: PRODUCT USED FOR UNKNOWN INDICATION
     Dosage: 500 MG, QD
     Route: 042
     Dates: start: 20161110

REACTIONS (4)
  - Macular oedema [Recovered/Resolved]
  - Vision blurred [Unknown]
  - Condition aggravated [Recovered/Resolved]
  - Pain in extremity [Not Recovered/Not Resolved]

NARRATIVE: CASE EVENT DATE: 20161114
